FAERS Safety Report 10652847 (Version 2)
Quarter: 2014Q4

REPORT INFORMATION
  Report Type: Report from Study
  Country: JP (occurrence: JP)
  Receive Date: 20141215
  Receipt Date: 20141215
  Transmission Date: 20150529
  Serious: Yes (Hospitalization)
  Sender: FDA-Public Use
  Company Number: JP-B.I. PHARMACEUTICALS,INC./RIDGEFIELD-2014-BI-38574NB

PATIENT
  Age: 61 Year
  Sex: Female
  Weight: 35 kg

DRUGS (3)
  1. GILOTRIF [Suspect]
     Active Substance: AFATINIB
     Indication: LUNG ADENOCARCINOMA
     Dosage: 30 MG
     Route: 065
     Dates: start: 20140709, end: 20140723
  2. MIYA-BM [Concomitant]
     Active Substance: CLOSTRIDIUM BUTYRICUM SPORES STRAIN M-55
     Indication: PROPHYLAXIS
     Dosage: DAILY DOSE AND DOSE PER APPLICATION: 3 DF
     Route: 048
     Dates: start: 20140709, end: 20140731
  3. HIRUDOID [Concomitant]
     Active Substance: GLYCOSAMINOGLYCANS
     Indication: PROPHYLAXIS
     Route: 065
     Dates: start: 20140709

REACTIONS (2)
  - Diarrhoea [Recovered/Resolved]
  - Pseudomembranous colitis [Recovered/Resolved]

NARRATIVE: CASE EVENT DATE: 20140717
